FAERS Safety Report 7444397-7 (Version None)
Quarter: 2011Q2

REPORT INFORMATION
  Report Type: 
  Country: None (occurrence: None)
  Receive Date: 20110429
  Receipt Date: 20110415
  Transmission Date: 20111010
  Serious: Yes (Hospitalization, Other)
  Sender: FDA-Public Use
  Company Number: US-BAYER-201037184NA

PATIENT
  Age: 29 Year
  Sex: Female
  Weight: 126.98 kg

DRUGS (6)
  1. NAPROXEN [Concomitant]
     Dosage: UNK
  2. NEXIUM [Concomitant]
  3. YASMIN [Suspect]
     Indication: CONTRACEPTION
     Dosage: UNK
     Route: 048
     Dates: start: 20040301, end: 20041001
  4. REGLAN [Concomitant]
     Dosage: UNK
     Dates: start: 20060709
  5. YASMIN [Suspect]
     Dosage: UNK
     Route: 048
     Dates: start: 20060501, end: 20060711
  6. LEVAQUIN [Concomitant]
     Dosage: UNK
     Dates: start: 20060710

REACTIONS (6)
  - EMOTIONAL DISTRESS [None]
  - DEEP VEIN THROMBOSIS [None]
  - DYSPNOEA [None]
  - PAIN [None]
  - PULMONARY EMBOLISM [None]
  - SWELLING [None]
